FAERS Safety Report 4761727-5 (Version None)
Quarter: 2005Q3

REPORT INFORMATION
  Report Type: 
  Country: None (occurrence: None)
  Receive Date: 20050906
  Receipt Date: 20050826
  Transmission Date: 20060218
  Serious: Yes (Hospitalization, Other)
  Sender: FDA-Public Use
  Company Number: PHBS2005GB12608

PATIENT
  Age: 55 Year
  Sex: Male

DRUGS (11)
  1. ISOSORBIDE MONONITRATE [Suspect]
     Dosage: 60 MG, QD
  2. HYDRALAZINE [Suspect]
     Dosage: 50 MG, BID
  3. ASPIRIN [Suspect]
     Dosage: 75 MG, QD
  4. ATORVASTATIN CALCIUM [Suspect]
     Dosage: 10 MG, QD
  5. BENDROFLUMETHIAZIDE [Suspect]
     Dosage: 2.5 MG, QD
  6. RAMIPRIL [Suspect]
     Dosage: 2.5 MG, QD
  7. AMLODIPINE [Suspect]
     Dosage: 5 MG, QD
  8. AMLODIPINE [Suspect]
     Dosage: 10 MG, QD
  9. PIOGLITAZONE HCL [Suspect]
     Dosage: 15 MG, QD
  10. METFORMIN [Suspect]
     Dosage: 850 MG, TID
  11. METHYLDOPA [Suspect]
     Dosage: 250 MG, TID

REACTIONS (11)
  - ASTHENIA [None]
  - ATRIAL FIBRILLATION [None]
  - CEREBRAL HAEMATOMA [None]
  - DYSARTHRIA [None]
  - GLUCOSE URINE PRESENT [None]
  - HEMIANOPIA HOMONYMOUS [None]
  - HYPERTENSION [None]
  - NEGLECT OF PERSONAL APPEARANCE [None]
  - PROTEINURIA [None]
  - SOMNOLENCE [None]
  - VENTRICULAR HYPERTROPHY [None]
